FAERS Safety Report 17578427 (Version 1)
Quarter: 2020Q1

REPORT INFORMATION
  Report Type: Report from Study
  Country: US (occurrence: US)
  Receive Date: 20200324
  Receipt Date: 20200324
  Transmission Date: 20200409
  Serious: Yes (Hospitalization)
  Sender: FDA-Public Use
  Company Number: US-GILEAD-2020-0456315

PATIENT
  Age: 25 Year
  Sex: Male

DRUGS (24)
  1. GLUCAGON. [Concomitant]
     Active Substance: GLUCAGON
  2. LINEZOLID. [Concomitant]
     Active Substance: LINEZOLID
  3. SODIUM CHLORIDE. [Concomitant]
     Active Substance: SODIUM CHLORIDE
  4. CIPROFLOXACIN. [Concomitant]
     Active Substance: CIPROFLOXACIN
  5. AZELASTINE. [Concomitant]
     Active Substance: AZELASTINE HYDROCHLORIDE
  6. HUMALOG JUNIOR KWIKPEN [Concomitant]
     Active Substance: INSULIN LISPRO
  7. LANTUS [Concomitant]
     Active Substance: INSULIN GLARGINE
  8. PULMOZYME [Concomitant]
     Active Substance: DORNASE ALFA
  9. TRAMADOL HYDROCHLORIDE. [Concomitant]
     Active Substance: TRAMADOL HYDROCHLORIDE
  10. TRIKAFTA [Concomitant]
     Active Substance: ELEXACAFTOR\IVACAFTOR\TEZACAFTOR
  11. ZOLPIDEM [Concomitant]
     Active Substance: ZOLPIDEM TARTRATE
  12. LEVOCETIRIZIN [Concomitant]
     Active Substance: LEVOCETIRIZINE DIHYDROCHLORIDE
  13. AZTREONAM LYSINE [Suspect]
     Active Substance: AZTREONAM LYSINE
     Indication: CYSTIC FIBROSIS LUNG
     Dosage: 1 DOSAGE FORM, TID, 28 DAYS ON, 28 DAYS OFF
     Route: 055
     Dates: start: 20140228
  14. SYMBICORT [Concomitant]
     Active Substance: BUDESONIDE\FORMOTEROL FUMARATE DIHYDRATE
  15. KETOCONAZOLE. [Concomitant]
     Active Substance: KETOCONAZOLE
  16. MONTELUKAST [Concomitant]
     Active Substance: MONTELUKAST SODIUM
  17. PROAIR BRONQUIAL [Concomitant]
  18. TOBI [Concomitant]
     Active Substance: TOBRAMYCIN
  19. AMLODIPINE [Concomitant]
     Active Substance: AMLODIPINE BESYLATE
  20. PROMETHAZINE [Concomitant]
     Active Substance: PROMETHAZINE HYDROCHLORIDE
  21. SERTRALINE [Concomitant]
     Active Substance: SERTRALINE HYDROCHLORIDE
  22. DOXYCYCLIN [DOXYCYCLINE MONOHYDRATE] [Concomitant]
  23. GABAPENTIN. [Concomitant]
     Active Substance: GABAPENTIN
  24. ZYVOX [Concomitant]
     Active Substance: LINEZOLID

REACTIONS (1)
  - Malaise [Recovering/Resolving]
